FAERS Safety Report 16056670 (Version 1)
Quarter: 2019Q1

REPORT INFORMATION
  Report Type: Spontaneous
  Country: US (occurrence: US)
  Receive Date: 20190311
  Receipt Date: 20190311
  Transmission Date: 20190418
  Serious: No
  Sender: FDA-Public Use
  Company Number: US-SUNOVION-2019SUN000948

PATIENT
  Age: 74 Year
  Weight: 62.49 kg

DRUGS (21)
  1. MONTELUKAST AA [Concomitant]
     Dosage: 10 MG, QD
     Route: 048
  2. XARELTO [Concomitant]
     Active Substance: RIVAROXABAN
     Dosage: 15 MG, QD (1 TABLET BY MOUTH DAILY WITH EVENING MEAL)
     Route: 048
  3. CARVEDILOL SANDOZ [Concomitant]
     Active Substance: CARVEDILOL
     Dosage: 3.125 MG
     Route: 065
  4. CELESTONE SOLUSPAN [Concomitant]
     Active Substance: BETAMETHASONE ACETATE\BETAMETHASONE SODIUM PHOSPHATE
     Dosage: UNK
     Route: 065
     Dates: start: 20170628
  5. BUMETANIDE. [Concomitant]
     Active Substance: BUMETANIDE
     Dosage: 1 MG, QD (ONE TABLET BY MOUTH EVERY DAY)
     Route: 048
  6. CLONAZEPAM AUDEN [Concomitant]
     Active Substance: CLONAZEPAM
     Dosage: 2 MG, QD (ONE TABLET BY MOUTH AT BEDTIME)
     Route: 048
  7. PENTOXIFYLLINE AL [Concomitant]
     Dosage: 400 MG, BID (ONE TABLET EXTENDED RELEASE TWICE A DAY)
     Route: 048
  8. FLUTICASONE PROPIONATE. [Concomitant]
     Active Substance: FLUTICASONE PROPIONATE
     Dosage: 50 MCG/CTUATION NASAL SPRAY, SUSPENSION (1 SPRAYS PER SIDO Q HS)
     Route: 045
  9. FOLIC ACID ALMUS [Concomitant]
     Active Substance: FOLIC ACID
     Dosage: 1 MG, QD (ONE TABLET BY MOUTH EVERY DAY)
     Route: 048
  10. COMBIVENT RESPIMAT [Concomitant]
     Active Substance: ALBUTEROL SULFATE\IPRATROPIUM BROMIDE
     Dosage: 20MCG-100 MCG/ACTUATION SOLUTION FOR INHALATION (USE 2 PUFFS 3 TIMES DAILY AS NEEDED)
     Route: 055
  11. LEVOTHYROXINE TEVA [Concomitant]
     Active Substance: LEVOTHYROXINE
     Dosage: 75 MCG, QD
     Route: 048
  12. SINEMET LP [Concomitant]
     Active Substance: CARBIDOPA\LEVODOPA
     Dosage: 10 MG-100 MG TABLET EVERY DAY AT BEDTIME, QD
     Route: 048
  13. TIZANIDINE TEVA [Concomitant]
     Dosage: 4 MG, TID (1 TABLET BY MOUTH EVERY 8 HOURS)
     Route: 048
  14. TRAMADOL AN [Concomitant]
     Dosage: 50 MG, QID (1 TABLET EVERY 6 HOURS)
     Route: 048
  15. BREO ELLIPTA [Concomitant]
     Active Substance: FLUTICASONE FUROATE\VILANTEROL TRIFENATATE
     Dosage: 200MCG-25MCG/DOSE POWDER FOR INHALATION, QD (ONE PUFF DAILY AS DIRECTED)
     Route: 055
  16. DEPO-MEDROL [Concomitant]
     Active Substance: METHYLPREDNISOLONE ACETATE
     Dosage: 80 MG/ML SUSPENSION FOR INJECTION (1 ML BY INJECTION ROUTE)
     Route: 051
  17. ENTRESTO [Concomitant]
     Active Substance: SACUBITRIL\VALSARTAN
     Dosage: 24 MG - 26 MG TABLET BY MOUTH, BID
     Route: 048
  18. PANTOPRAZOLE SODIUM. [Concomitant]
     Active Substance: PANTOPRAZOLE SODIUM
     Dosage: 40 MG TABLET DELAYED RELEASE
     Route: 065
  19. LONHALA MAGNAIR [Suspect]
     Active Substance: GLYCOPYRROLATE
     Dosage: UNK
     Route: 055
  20. BUDESONIDE. [Concomitant]
     Active Substance: BUDESONIDE
     Dosage: 0.5 MG/2 ML SUSPENSION FOR NEBULIZER, BID (INHALE 2 ML TWICE A DAY BY NEBULIZATION ROUTE)
     Route: 055
  21. LATANOPROST AL [Concomitant]
     Dosage: QD (0.005 % 1 DROP INTO AFFECTED EYE(S) BY OPHTALMIC ROUTE ONCE DAILY IN THE EVENING)
     Route: 047

REACTIONS (1)
  - Dyspnoea [Unknown]

NARRATIVE: CASE EVENT DATE: 20190227
